FAERS Safety Report 25764968 (Version 1)
Quarter: 2025Q3

REPORT INFORMATION
  Report Type: Report from Study
  Country: AR (occurrence: AR)
  Receive Date: 20250905
  Receipt Date: 20250905
  Transmission Date: 20251021
  Serious: Yes (Other)
  Sender: ABBVIE
  Company Number: AR-ABBVIE-6444651

PATIENT
  Sex: Female

DRUGS (2)
  1. RINVOQ [Suspect]
     Active Substance: UPADACITINIB
     Indication: Rheumatoid arthritis
     Dosage: FORM STRENGTH: 15 MG  FOR 30 TABLETS
     Route: 048
     Dates: start: 20220824
  2. ISONIAZID [Concomitant]
     Active Substance: ISONIAZID
     Indication: Product used for unknown indication

REACTIONS (5)
  - Hepatitis [Unknown]
  - American trypanosomiasis [Unknown]
  - Syphilis [Unknown]
  - Latent tuberculosis [Not Recovered/Not Resolved]
  - Acquired immunodeficiency syndrome [Unknown]
